FAERS Safety Report 8807184 (Version 1)
Quarter: 2012Q4

REPORT INFORMATION
  Report Type: 
  Country: US (occurrence: US)
  Receive Date: 20120925
  Receipt Date: 20120925
  Transmission Date: 20130627
  Serious: Yes (Disabling)
  Sender: FDA-Public Use
  Company Number: US-PFIZER INC-2012236726

PATIENT
  Sex: Female
  Weight: 113 kg

DRUGS (8)
  1. CELEBREX [Suspect]
     Indication: ARTHRALGIA
     Dosage: 200 mg, 1x/day
     Route: 048
  2. CHANTIX [Concomitant]
  3. ALBUTEROL [Concomitant]
     Indication: CHRONIC OBSTRUCTIVE PULMONARY DISEASE
  4. SPIRIVA [Concomitant]
     Indication: CHRONIC OBSTRUCTIVE PULMONARY DISEASE
  5. ADVAIR [Concomitant]
     Indication: CHRONIC OBSTRUCTIVE PULMONARY DISEASE
     Dosage: UNK
  6. NEURONTIN [Concomitant]
     Indication: NERVE INJURY
     Dosage: UNK, 1x/day
  7. CYMBALTA [Concomitant]
     Indication: DEPRESSION
     Dosage: UNK, 1x/day
  8. AMITRIPTYLINE [Concomitant]
     Dosage: UNK, 1x/day

REACTIONS (1)
  - Mental impairment [Unknown]
